FAERS Safety Report 20170721 (Version 1)
Quarter: 2021Q4

REPORT INFORMATION
  Report Type: Spontaneous
  Country: US (occurrence: None)
  Receive Date: 20211210
  Receipt Date: 20211210
  Transmission Date: 20220303
  Serious: No
  Sender: FDA-Public Use
  Company Number: None

PATIENT
  Age: 74 Year
  Sex: Male

DRUGS (1)
  1. WARFARIN SODIUM [Suspect]
     Active Substance: WARFARIN SODIUM
     Dosage: FREQUENCY : DAILY;?
     Route: 048
     Dates: end: 20210904

REACTIONS (6)
  - Deep vein thrombosis [None]
  - Peripheral swelling [None]
  - Haematoma [None]
  - Haemoglobin decreased [None]
  - Anticoagulation drug level below therapeutic [None]
  - Haemorrhage [None]

NARRATIVE: CASE EVENT DATE: 20210904
